FAERS Safety Report 5363878-3 (Version None)
Quarter: 2007Q2

REPORT INFORMATION
  Report Type: 
  Country: None (occurrence: None)
  Receive Date: 20070620
  Receipt Date: 20070614
  Transmission Date: 20071010
  Serious: Yes (Disabling)
  Sender: FDA-Public Use
  Company Number: BE-ASTRAZENECA-2007AC00891

PATIENT
  Age: 16355 Day
  Sex: Female
  Weight: 47 kg

DRUGS (1)
  1. NOLVADEX [Suspect]
     Indication: PROPHYLAXIS
     Route: 048
     Dates: start: 20070320

REACTIONS (3)
  - ABDOMINAL PAIN [None]
  - ARTHRALGIA [None]
  - DYSMENORRHOEA [None]
